FAERS Safety Report 9697948 (Version 1)
Quarter: 2013Q4

REPORT INFORMATION
  Report Type: Spontaneous
  Country: CA (occurrence: CA)
  Receive Date: 20131120
  Receipt Date: 20131120
  Transmission Date: 20140711
  Serious: Yes (Life-Threatening)
  Sender: FDA-Public Use
  Company Number: CA-AMGEN-CANSP2013080654

PATIENT
  Age: 55 Year
  Sex: Male
  Weight: 95 kg

DRUGS (10)
  1. XGEVA [Suspect]
     Indication: PRODUCT USED FOR UNKNOWN INDICATION
     Dosage: 120 MG, Q4WK
     Route: 058
  2. ARANESP [Concomitant]
     Route: 042
  3. NEUPOGEN [Concomitant]
  4. CELEBREX [Concomitant]
  5. DEXAMETHASONE [Concomitant]
  6. ONE ALPHA [Concomitant]
  7. OXYBUTYNIN [Concomitant]
  8. PANTOLOC                           /01263204/ [Concomitant]
  9. PROCHLORPERAZINE [Concomitant]
  10. VITAMIN D                          /00107901/ [Concomitant]

REACTIONS (3)
  - Condition aggravated [Recovered/Resolved]
  - Hypocalcaemia [Recovered/Resolved]
  - Hypophosphataemia [Recovered/Resolved]
